FAERS Safety Report 5700145-X (Version None)
Quarter: 2008Q2

REPORT INFORMATION
  Report Type: 
  Country: None (occurrence: None)
  Receive Date: 20080410
  Receipt Date: 20080401
  Transmission Date: 20081010
  Serious: Yes (Other)
  Sender: FDA-Public Use
  Company Number: PHHY2008ES04837

PATIENT
  Age: 68 Year
  Sex: Female

DRUGS (12)
  1. VADITON PROLIB [Suspect]
     Indication: DIABETES MELLITUS
     Dosage: 8 MG, QD
     Route: 048
     Dates: start: 20070625
  2. ACETENSIL PLUS [Concomitant]
     Route: 048
     Dates: start: 20051024
  3. SYMBICORT [Concomitant]
     Indication: INHALATION THERAPY
     Dosage: 160/4.5 MICROGRAMS
     Dates: start: 20051215
  4. EUTIROX [Concomitant]
     Dosage: 100 MICROGRAMS
     Route: 048
     Dates: start: 20070625
  5. MANIDON [Concomitant]
     Route: 048
     Dates: start: 20051024
  6. VENTOLIN [Concomitant]
     Dosage: 100 MICROGRAMS
     Dates: start: 20051215
  7. ANAGASTRA [Concomitant]
     Dosage: 20 MG/ DAY
     Route: 048
     Dates: start: 20051024
  8. SINTROM [Concomitant]
     Dosage: 4 MG/ UNK
     Route: 048
     Dates: start: 20051024
  9. ORFIDAL [Concomitant]
     Dosage: 1 MG/ UNK
     Route: 048
     Dates: start: 20051024
  10. SEGURIL [Concomitant]
     Dosage: 40 MG/ UNK
     Route: 048
     Dates: start: 20060203
  11. HUMALOG MIX 50/50 PEN [Concomitant]
     Dosage: 100U/ML/UNK
     Route: 058
     Dates: start: 20070625
  12. DIGOXIN [Concomitant]
     Dosage: 0.25 MG/ UNK
     Route: 048
     Dates: start: 20060109

REACTIONS (6)
  - ASPARTATE AMINOTRANSFERASE INCREASED [None]
  - GAMMA-GLUTAMYLTRANSFERASE INCREASED [None]
  - HEPATIC ENZYME INCREASED [None]
  - MYALGIA [None]
  - OEDEMA [None]
  - PRURITUS [None]
